FAERS Safety Report 5153511-8 (Version None)
Quarter: 2006Q4

REPORT INFORMATION
  Report Type: 
  Country: None (occurrence: None)
  Receive Date: 20061117
  Receipt Date: 20061109
  Transmission Date: 20070319
  Serious: Yes (Other)
  Sender: FDA-Public Use
  Company Number: DE-ABBOTT-06P-062-0350198-00

PATIENT
  Age: 17 Year
  Sex: Female
  Weight: 55 kg

DRUGS (1)
  1. KLACID TABLETS [Suspect]
     Indication: SUICIDE ATTEMPT
     Dosage: 6-8 TABLETS AT ONCE
     Route: 048
     Dates: start: 20061109, end: 20061109

REACTIONS (1)
  - SUICIDE ATTEMPT [None]
